FAERS Safety Report 8985613 (Version 1)
Quarter: 2012Q4

REPORT INFORMATION
  Report Type: 
  Country: JP (occurrence: JP)
  Receive Date: 20121226
  Receipt Date: 20121226
  Transmission Date: 20130627
  Serious: Yes (Hospitalization, Other)
  Sender: FDA-Public Use
  Company Number: JP-PFIZER INC-2012316947

PATIENT
  Age: 71 Year
  Sex: Male

DRUGS (4)
  1. AZULFIDINE EN [Suspect]
     Indication: RA
     Dosage: 500 mg, UNK
     Dates: start: 20121102, end: 20121212
  2. NESINA [Concomitant]
     Indication: TYPE II DIABETES MELLITUS
  3. PREDONINE [Concomitant]
     Dosage: 2.5 mg, UNK
  4. CELECOX [Concomitant]

REACTIONS (2)
  - Pancytopenia [Not Recovered/Not Resolved]
  - Gastrointestinal haemorrhage [Unknown]
